FAERS Safety Report 8886375 (Version 1)
Quarter: 2012Q4

REPORT INFORMATION
  Report Type: 
  Country: US (occurrence: US)
  Receive Date: 20121105
  Receipt Date: 20121105
  Transmission Date: 20130627
  Serious: Yes (Hospitalization)
  Sender: FDA-Public Use
  Company Number: US-GLAXOSMITHKLINE-A0875023A

PATIENT
  Age: 51 Year
  Sex: Male
  Weight: 135.5 kg

DRUGS (1)
  1. AVANDIA [Suspect]
     Indication: DIABETES MELLITUS
     Route: 048
     Dates: start: 2000, end: 2002

REACTIONS (8)
  - Cardiac failure congestive [Not Recovered/Not Resolved]
  - Weight increased [Unknown]
  - Renal failure [Unknown]
  - Wrist fracture [Unknown]
  - Foot fracture [Unknown]
  - Ankle fracture [Unknown]
  - Cardiac disorder [Unknown]
  - Renal injury [Unknown]
